FAERS Safety Report 10663754 (Version 4)
Quarter: 2015Q1

REPORT INFORMATION
  Report Type: Report from Study
  Country: ZA (occurrence: None)
  Receive Date: 20141217
  Receipt Date: 20150113
  Transmission Date: 20150720
  Serious: Yes (Death, Other)
  Sender: FDA-Public Use
  Company Number: ZA2014033092

PATIENT
  Age: 36 Year
  Sex: Female
  Weight: 47.7 kg

DRUGS (1)
  1. ABACAVIRSULPHATE+DOLUTEGRAVIR+LAMIVUDINE (ABACAVIR SULPHATE, DOLUTEGRAVIR, LAMIVUDINE) TABLET [Suspect]
     Active Substance: ABACAVIR SULFATE\DOLUTEGRAVIR SODIUM\LAMIVUDINE
     Indication: HIV INFECTION
     Route: 048
     Dates: start: 20140609, end: 201408

REACTIONS (7)
  - Condition aggravated [None]
  - Death [None]
  - Abdominal discomfort [None]
  - Blood albumin decreased [None]
  - Weight decreased [None]
  - Anaemia [None]
  - General physical health deterioration [None]

NARRATIVE: CASE EVENT DATE: 20140829
